FAERS Safety Report 8131957 (Version 2)
Quarter: 2012Q4

REPORT INFORMATION
  Report Type: 
  Country: MX (occurrence: MX)
  Receive Date: 20110912
  Receipt Date: 20120830
  Transmission Date: 20130627
  Serious: Yes (Hospitalization)
  Sender: FDA-Public Use
  Company Number: PHHY2011MX77196

PATIENT
  Age: 73 Year
  Sex: Female

DRUGS (7)
  1. CO-DIOVAN [Suspect]
     Indication: HYPERTENSION
     Dosage: 1 DF (160/12.5), daily
     Dates: start: 200803, end: 201102
  2. SINTROM [Concomitant]
     Dosage: 1 DF, daily
  3. PHENYTOIN [Concomitant]
     Dosage: 3 DF, daily
  4. HYDROCHLOROTHIAZIDE [Concomitant]
     Dosage: 1.5 DF, daily
  5. DILTIAZEM [Concomitant]
     Dosage: 2 DF, daily
  6. METOPROLOL [Concomitant]
     Dosage: 2 DF, daily
  7. DAFLON (DIOSMIN/HESPERIDIN) [Concomitant]
     Dosage: 1 DF, daily

REACTIONS (7)
  - Meningioma [Recovering/Resolving]
  - Gait disturbance [Recovered/Resolved]
  - Fluid retention [Recovering/Resolving]
  - Coagulopathy [Recovering/Resolving]
  - Congestive cardiomyopathy [Recovering/Resolving]
  - Dizziness [Recovered/Resolved]
  - Cardiac output decreased [Recovered/Resolved]
